FAERS Safety Report 13331779 (Version 2)
Quarter: 2017Q2

REPORT INFORMATION
  Report Type: Spontaneous
  Country: PL (occurrence: PL)
  Receive Date: 20170313
  Receipt Date: 20170425
  Transmission Date: 20170830
  Serious: Yes (Other)
  Sender: FDA-Public Use
  Company Number: PL-TEVA-746615ISR

PATIENT
  Age: 78 Year
  Sex: Female

DRUGS (7)
  1. TORASEMIDE [Concomitant]
     Active Substance: TORSEMIDE
     Dosage: AT THE MORNING
  2. LISINOPRIL. [Concomitant]
     Active Substance: LISINOPRIL
     Dosage: AT THE MORNING
  3. PANTOPRAZOLE [Suspect]
     Active Substance: PANTOPRAZOLE
     Dosage: AT THE MORNING
  4. DABIGATRAN [Concomitant]
     Active Substance: DABIGATRAN
     Indication: ANTICOAGULANT THERAPY
     Dosage: 300 MILLIGRAM DAILY;
  5. PROPAFENONE. [Suspect]
     Active Substance: PROPAFENONE
     Dosage: 300 MILLIGRAM DAILY;
  6. BISOPROLOL [Suspect]
     Active Substance: BISOPROLOL
     Dosage: AT THE MORNING
  7. ROSUVASTATIN. [Suspect]
     Active Substance: ROSUVASTATIN
     Dosage: AT THE MORNING

REACTIONS (3)
  - Drug-induced liver injury [Recovered/Resolved]
  - Myopathy [Recovered/Resolved]
  - Rhabdomyolysis [Recovered/Resolved]
